FAERS Safety Report 8803712 (Version 2)
Quarter: 2013Q2

REPORT INFORMATION
  Report Type: Spontaneous
  Country: IL (occurrence: IL)
  Receive Date: 20120924
  Receipt Date: 20130517
  Transmission Date: 20140414
  Serious: Yes (Hospitalization, Other)
  Sender: FDA-Public Use
  Company Number: IL-JNJFOC-20120906975

PATIENT
  Age: 77 Year
  Sex: Female

DRUGS (4)
  1. REMICADE [Suspect]
     Indication: CROHN^S DISEASE
     Route: 042
  2. HYDROCORTISON [Concomitant]
     Indication: PREMEDICATION
     Route: 042
  3. PHENERGAN [Concomitant]
     Indication: PREMEDICATION
     Route: 042
  4. ACAMOL [Concomitant]
     Indication: PREMEDICATION
     Route: 065

REACTIONS (2)
  - Cardiac disorder [Recovered/Resolved]
  - Palpitations [Recovered/Resolved]
